FAERS Safety Report 17686471 (Version 1)
Quarter: 2020Q2

REPORT INFORMATION
  Report Type: Other
  Country: DE (occurrence: DE)
  Receive Date: 20200420
  Receipt Date: 20200420
  Transmission Date: 20200714
  Serious: Yes (Disabling)
  Sender: FDA-Public Use
  Company Number: DE-GE HEALTHCARE LIFE SCIENCES-2018CSU002529

PATIENT

DRUGS (12)
  1. OMNISCAN [Suspect]
     Active Substance: GADODIAMIDE
     Indication: PRODUCT USED FOR UNKNOWN INDICATION
     Dosage: 13 ML, SINGLE
     Route: 065
     Dates: start: 20080401, end: 20080401
  2. MAGNEVIST [Suspect]
     Active Substance: GADOPENTETATE DIMEGLUMINE
     Dosage: 20 ML, UNK
     Route: 065
     Dates: start: 20100413, end: 20100413
  3. GADOVIST [Suspect]
     Active Substance: GADOBUTROL
     Dosage: 6 ML
     Route: 065
     Dates: start: 20110816, end: 20110816
  4. MAGNEVIST [Suspect]
     Active Substance: GADOPENTETATE DIMEGLUMINE
     Dosage: 15 ML, UNK
     Route: 065
     Dates: start: 20070910, end: 20070910
  5. MAGNEVIST [Suspect]
     Active Substance: GADOPENTETATE DIMEGLUMINE
     Indication: PRODUCT USED FOR UNKNOWN INDICATION
     Dosage: 15 ML, UNK
     Route: 065
     Dates: start: 20100414, end: 20100414
  6. MAGNEVIST [Suspect]
     Active Substance: GADOPENTETATE DIMEGLUMINE
     Dosage: 15 ML, UNK
     Route: 065
     Dates: start: 20100409, end: 20100409
  7. MAGNEVIST [Suspect]
     Active Substance: GADOPENTETATE DIMEGLUMINE
     Dosage: 15 ML, UNK
     Route: 065
     Dates: start: 20070919, end: 20070919
  8. GADOVIST [Suspect]
     Active Substance: GADOBUTROL
     Indication: PRODUCT USED FOR UNKNOWN INDICATION
     Dosage: 7 ML, UNK
     Route: 065
     Dates: start: 20120125, end: 20120125
  9. OMNISCAN [Suspect]
     Active Substance: GADODIAMIDE
     Indication: MAGNETIC RESONANCE IMAGING
     Dosage: UNK UNK, SINGLE
     Route: 065
     Dates: start: 20161108, end: 20161108
  10. DOTAREM [Suspect]
     Active Substance: GADOTERATE MEGLUMINE
     Indication: PRODUCT USED FOR UNKNOWN INDICATION
     Dosage: UNK ML, UNK
     Route: 065
     Dates: start: 20150619, end: 20150619
  11. DOTAREM [Suspect]
     Active Substance: GADOTERATE MEGLUMINE
     Dosage: 15 ML, UNK
     Route: 065
     Dates: start: 20140528, end: 20140528
  12. DOTAREM [Suspect]
     Active Substance: GADOTERATE MEGLUMINE
     Dosage: 13 ML, UNK
     Route: 065
     Dates: start: 20130423, end: 20130423

REACTIONS (17)
  - Burning sensation [Recovered/Resolved with Sequelae]
  - Pain [Recovered/Resolved with Sequelae]
  - Paraesthesia [Not Recovered/Not Resolved]
  - Arthropathy [Not Recovered/Not Resolved]
  - Ocular discomfort [Recovered/Resolved with Sequelae]
  - Pain [Not Recovered/Not Resolved]
  - Dizziness [Not Recovered/Not Resolved]
  - Spinal pain [Recovered/Resolved with Sequelae]
  - Sensory disturbance [Not Recovered/Not Resolved]
  - Photophobia [Not Recovered/Not Resolved]
  - Loss of personal independence in daily activities [Recovered/Resolved with Sequelae]
  - Muscle twitching [Not Recovered/Not Resolved]
  - Burning sensation [Not Recovered/Not Resolved]
  - Visual impairment [Not Recovered/Not Resolved]
  - Neck pain [Recovered/Resolved with Sequelae]
  - Paraesthesia [Recovered/Resolved with Sequelae]
  - Feeling abnormal [Recovered/Resolved with Sequelae]
